FAERS Safety Report 4609931-0 (Version None)
Quarter: 2005Q1

REPORT INFORMATION
  Report Type: 
  Country: None (occurrence: None)
  Receive Date: 20050314
  Receipt Date: 20050314
  Transmission Date: 20050727
  Serious: Yes (Hospitalization)
  Sender: FDA-Public Use
  Company Number: None

PATIENT
  Age: 75 Year
  Sex: Male

DRUGS (10)
  1. WARFARIN [Suspect]
     Indication: ATRIAL FIBRILLATION
     Dosage: 2 MG QD / ADDITIONAL 1 MG MON AND THU
     Dates: start: 20020501
  2. ASPIRIN [Suspect]
     Dosage: 81 MG QD
     Dates: start: 20020501
  3. LORTAB [Concomitant]
  4. CALCIUM CARBONATE [Concomitant]
  5. ISOSORBIDE [Concomitant]
  6. SYNTHROID [Concomitant]
  7. NITROGLYCERIN [Concomitant]
  8. PAROXETINE HCL [Concomitant]
  9. TEMAZEPAM [Concomitant]
  10. FOSINOPRIL [Concomitant]

REACTIONS (1)
  - GASTROINTESTINAL HAEMORRHAGE [None]
